FAERS Safety Report 6578516-1 (Version None)
Quarter: 2010Q1

REPORT INFORMATION
  Report Type: 
  Country: None (occurrence: None)
  Receive Date: 20100211
  Receipt Date: 20100204
  Transmission Date: 20100710
  Serious: Yes (Life-Threatening, Hospitalization)
  Sender: FDA-Public Use
  Company Number: PHHO2010EG02020

PATIENT
  Sex: Female

DRUGS (2)
  1. ICL670A ICL+ [Suspect]
  2. DRUG THERAPY NOS [Concomitant]

REACTIONS (2)
  - CARDIAC ARREST [None]
  - RENAL FAILURE ACUTE [None]
